FAERS Safety Report 7020122-9 (Version None)
Quarter: 2010Q3

REPORT INFORMATION
  Report Type: 
  Country: None (occurrence: None)
  Receive Date: 20100929
  Receipt Date: 20100923
  Transmission Date: 20110219
  Serious: Yes (Hospitalization)
  Sender: FDA-Public Use
  Company Number: FR-JNJFOC-980520-107011747

PATIENT
  Age: 20 Year
  Sex: Female

DRUGS (2)
  1. TYLENOL W/ CODEINE [Suspect]
     Indication: HEADACHE
     Route: 048
     Dates: start: 19970221, end: 19970221
  2. ORAL CONTRACEPTIVE [Concomitant]
     Route: 048
     Dates: start: 19920101

REACTIONS (1)
  - PANCREATITIS [None]
